FAERS Safety Report 15425440 (Version 1)
Quarter: 2018Q3

REPORT INFORMATION
  Report Type: Spontaneous
  Country: IT (occurrence: IT)
  Receive Date: 20180925
  Receipt Date: 20180925
  Transmission Date: 20181010
  Serious: Yes (Life-Threatening)
  Sender: FDA-Public Use
  Company Number: IT-SA-2018SA264965

PATIENT
  Age: 67 Year
  Sex: Female

DRUGS (9)
  1. ELOXATIN [Suspect]
     Active Substance: OXALIPLATIN
     Dosage: UNK
     Route: 065
  2. ELOXATIN [Suspect]
     Active Substance: OXALIPLATIN
     Dosage: 117 MG, QCY
     Route: 042
     Dates: start: 20080428, end: 20080428
  3. TAD [GLUTATHIONE] [Concomitant]
     Indication: ADENOCARCINOMA OF COLON
     Dosage: 2500 MG, UNK
     Route: 042
     Dates: start: 20080122, end: 20080428
  4. ELOXATIN [Suspect]
     Active Substance: OXALIPLATIN
     Indication: ADENOCARCINOMA OF COLON
     Dosage: 117 MG, QCY
     Route: 042
     Dates: start: 20080122, end: 20080122
  5. FLUOROURACILE TEVA [Concomitant]
     Active Substance: FLUOROURACIL
     Indication: ADENOCARCINOMA OF COLON
     Dosage: 1656 MG, UNK
     Route: 042
     Dates: start: 20080122, end: 20080428
  6. EUTIROX [Concomitant]
     Active Substance: LEVOTHYROXINE SODIUM
     Indication: ADENOCARCINOMA OF COLON
     Dosage: 50 UG, UNK
     Route: 048
     Dates: start: 20080122, end: 20080428
  7. CALCIO LEVOFOLINATO [Concomitant]
     Active Substance: LEVOLEUCOVORIN CALCIUM
     Indication: ADENOCARCINOMA OF COLON
     Dosage: 138 MG, UNK
     Route: 042
     Dates: start: 20080122, end: 20080428
  8. FLUOROURACILE TEVA [Concomitant]
     Active Substance: FLUOROURACIL
     Dosage: 552 MG, UNK
     Route: 040
     Dates: start: 20080122, end: 20080428
  9. NAVOBAN [Concomitant]
     Active Substance: TROPISETRON HYDROCHLORIDE
     Indication: ADENOCARCINOMA OF COLON
     Dosage: 5 MG, UNK
     Route: 042
     Dates: start: 20080122, end: 20080428

REACTIONS (1)
  - Acute kidney injury [Unknown]

NARRATIVE: CASE EVENT DATE: 20080428
